FAERS Safety Report 23102489 (Version 2)
Quarter: 2023Q4

REPORT INFORMATION
  Report Type: Other
  Country: BR (occurrence: BR)
  Receive Date: 20231025
  Receipt Date: 20231102
  Transmission Date: 20240110
  Serious: Yes (Death, Hospitalization)
  Sender: FDA-Public Use
  Company Number: BR-ALVOGEN-2023092419

PATIENT
  Age: 40 Year
  Sex: Female
  Weight: 79.4 kg

DRUGS (3)
  1. PRIMAQUINE [Suspect]
     Active Substance: PRIMAQUINE
     Indication: Plasmodium vivax infection
     Dosage: FREQUENCY: 30?MG/DAY FOR 7 DAYS
     Dates: start: 20191213
  2. CHLOROQUINE [Suspect]
     Active Substance: CHLOROQUINE
     Indication: Plasmodium vivax infection
     Dosage: FOR 1 DAY (FIRST)
     Dates: start: 20191213
  3. CHLOROQUINE [Suspect]
     Active Substance: CHLOROQUINE
     Indication: Plasmodium vivax infection
     Dosage: SECOND AND THIRD DAY
     Dates: start: 201912

REACTIONS (2)
  - Acute respiratory distress syndrome [Fatal]
  - Cardiac arrest [Fatal]

NARRATIVE: CASE EVENT DATE: 20191201
